FAERS Safety Report 10188100 (Version 1)
Quarter: 2014Q2

REPORT INFORMATION
  Report Type: Spontaneous
  Country: ES (occurrence: ES)
  Receive Date: 20140522
  Receipt Date: 20140522
  Transmission Date: 20141212
  Serious: Yes (Hospitalization)
  Sender: FDA-Public Use
  Company Number: ES-MERCK-1405ESP009185

PATIENT
  Age: 55 Year
  Sex: Male
  Weight: 85 kg

DRUGS (6)
  1. PEGINTRON [Suspect]
     Indication: CHRONIC HEPATITIS C
     Dosage: 120 MG, QW
     Route: 058
     Dates: start: 20140325
  2. REBETOL [Suspect]
     Indication: CHRONIC HEPATITIS C
     Dosage: 1 DF, QD
     Route: 048
     Dates: start: 20140325
  3. TELAPREVIR [Suspect]
     Indication: CHRONIC HEPATITIS C
     Dosage: 1125 MG, BID
     Route: 048
     Dates: start: 20140325
  4. ENBREL [Concomitant]
     Indication: PSORIATIC ARTHROPATHY
     Route: 058
     Dates: start: 20070522, end: 20110111
  5. ENBREL [Concomitant]
     Dosage: 25 MG/21 DAYS
     Route: 058
     Dates: start: 20131227, end: 20140110
  6. ENBREL [Concomitant]
     Indication: PSORIATIC ARTHROPATHY
     Route: 058
     Dates: start: 20110221, end: 20131021

REACTIONS (3)
  - Erythema [Recovering/Resolving]
  - Skin exfoliation [Recovering/Resolving]
  - Psoriasis [Recovering/Resolving]
